FAERS Safety Report 8325773-7 (Version None)
Quarter: 2012Q2

REPORT INFORMATION
  Report Type: 
  Country: None (occurrence: None)
  Receive Date: 20120501
  Receipt Date: 20120405
  Transmission Date: 20120825
  Serious: No
  Sender: FDA-Public Use
  Company Number: US-BIOGENIDEC-2012BI006106

PATIENT
  Age: 57 Year
  Sex: Female

DRUGS (3)
  1. AVONEX [Concomitant]
     Indication: MULTIPLE SCLEROSIS
     Route: 030
  2. TYSABRI [Suspect]
     Indication: MULTIPLE SCLEROSIS
     Route: 042
     Dates: start: 20111103, end: 20120101
  3. AVONEX [Concomitant]
     Route: 030

REACTIONS (8)
  - ADVERSE EVENT [None]
  - MUSCULOSKELETAL STIFFNESS [None]
  - DYSSTASIA [None]
  - DISCOMFORT [None]
  - BALANCE DISORDER [None]
  - SENSATION OF HEAVINESS [None]
  - HYPOAESTHESIA [None]
  - MUSCULOSKELETAL DISORDER [None]
